FAERS Safety Report 7590475-1 (Version None)
Quarter: 2011Q3

REPORT INFORMATION
  Report Type: 
  Country: None (occurrence: None)
  Receive Date: 20110705
  Receipt Date: 20110616
  Transmission Date: 20111222
  Serious: No
  Sender: FDA-Public Use
  Company Number: US-B.I. PHARMACEUTICALS,INC./RIDGEFIELD-2011-BP-14219BP

PATIENT
  Age: 83 Year
  Sex: Female

DRUGS (8)
  1. NEXIUM [Concomitant]
     Dosage: 40 MG
  2. ASPIRIN [Concomitant]
     Dosage: 81 MG
  3. DILTIAZEM [Concomitant]
     Dosage: 180 MG
  4. LIPITOR [Concomitant]
     Dosage: 10 MG
  5. PRADAXA [Suspect]
     Indication: ATRIAL FIBRILLATION
     Route: 048
     Dates: start: 20110424, end: 20110518
  6. METOPROLOL TARTRATE [Concomitant]
     Dosage: 25 MG
  7. PRADAXA [Suspect]
  8. HYDROCHLOROTHIAZIDE [Concomitant]
     Dosage: 25 MG

REACTIONS (2)
  - FLUID RETENTION [None]
  - FATIGUE [None]
